FAERS Safety Report 8343146-8 (Version None)
Quarter: 2012Q2

REPORT INFORMATION
  Report Type: 
  Country: None (occurrence: None)
  Receive Date: 20120508
  Receipt Date: 20120502
  Transmission Date: 20120825
  Serious: Yes (Hospitalization)
  Sender: FDA-Public Use
  Company Number: AT-PFIZER INC-2012107371

PATIENT
  Age: 22 Year
  Sex: Female

DRUGS (1)
  1. EFFEXOR XR [Suspect]
     Dosage: 20 DF, SINGLE/75MG X20
     Dates: start: 20111205, end: 20111205

REACTIONS (7)
  - MUSCLE SPASMS [None]
  - DIZZINESS [None]
  - INTENTIONAL OVERDOSE [None]
  - CHOLINERGIC SYNDROME [None]
  - CHILLS [None]
  - HYPERTENSION [None]
  - SINUS TACHYCARDIA [None]
